FAERS Safety Report 8247791-X (Version None)
Quarter: 2012Q1

REPORT INFORMATION
  Report Type: 
  Country: None (occurrence: None)
  Receive Date: 20120330
  Receipt Date: 20120323
  Transmission Date: 20120608
  Serious: Yes (Other)
  Sender: FDA-Public Use
  Company Number: US-ELI_LILLY_AND_COMPANY-US201203007606

PATIENT
  Age: 72 Year
  Sex: Female
  Weight: 58.957 kg

DRUGS (4)
  1. HUMULIN R [Suspect]
     Indication: DIABETES MELLITUS
     Dosage: 600 U, QID
     Dates: start: 20110901
  2. INSULIN [Concomitant]
  3. METFORMIN HCL [Concomitant]
  4. LANTUS [Concomitant]
     Dosage: 80 U, BID

REACTIONS (4)
  - DRUG INEFFECTIVE [None]
  - HYPERGLYCAEMIA [None]
  - BLOOD GLUCOSE FLUCTUATION [None]
  - GLYCOSYLATED HAEMOGLOBIN INCREASED [None]
